FAERS Safety Report 12434978 (Version 2)
Quarter: 2016Q3

REPORT INFORMATION
  Report Type: Spontaneous
  Country: BR (occurrence: BR)
  Receive Date: 20160603
  Receipt Date: 20160706
  Transmission Date: 20161109
  Serious: Yes (Other)
  Sender: FDA-Public Use
  Company Number: BR-BIOMARINAP-BR-2016-109968

PATIENT
  Age: 17 Year
  Sex: Female
  Weight: 37 kg

DRUGS (1)
  1. VIMIZIM [Suspect]
     Active Substance: ELOSULFASE ALFA
     Indication: MUCOPOLYSACCHARIDOSIS IV
     Dosage: 75 MG, QW
     Route: 042
     Dates: start: 20151223

REACTIONS (2)
  - Tachycardia [Unknown]
  - Tremor [Unknown]

NARRATIVE: CASE EVENT DATE: 20160525
